FAERS Safety Report 24648766 (Version 1)
Quarter: 2024Q4

REPORT INFORMATION
  Report Type: Spontaneous
  Country: FR (occurrence: FR)
  Receive Date: 20241121
  Receipt Date: 20241121
  Transmission Date: 20250115
  Serious: Yes (Hospitalization)
  Sender: TEVA
  Company Number: None

PATIENT
  Age: 67 Year
  Sex: Female
  Weight: 37 kg

DRUGS (18)
  1. ALPRAZOLAM [Interacting]
     Active Substance: ALPRAZOLAM
     Indication: Anxiety
     Route: 048
     Dates: end: 20240924
  2. GAVISCON [Concomitant]
     Active Substance: ALUMINUM HYDROXIDE\MAGNESIUM CARBONATE
     Indication: Gastrooesophageal reflux disease
     Route: 048
  3. GABAPENTIN [Interacting]
     Active Substance: GABAPENTIN
     Indication: Pain
     Route: 048
     Dates: end: 20240924
  4. CALCIUM CARBONATE\CHOLECALCIFEROL [Concomitant]
     Active Substance: CALCIUM CARBONATE\CHOLECALCIFEROL
     Indication: Osteoporosis
     Dosage: 500 MG/400 IU,
     Route: 048
     Dates: end: 20240924
  5. NORMACOL [Concomitant]
     Active Substance: HERBALS\KARAYA GUM
     Indication: Constipation prophylaxis
     Route: 048
  6. CLOPIDOGREL BESILATE [Concomitant]
     Indication: Cardiovascular event prophylaxis
     Route: 048
     Dates: end: 20240924
  7. METOCLOPRAMIDE HYDROCHLORIDE [Concomitant]
     Active Substance: METOCLOPRAMIDE HYDROCHLORIDE
     Indication: Nausea
     Route: 048
     Dates: end: 20240924
  8. POTASSIUM CHLORIDE [Interacting]
     Active Substance: POTASSIUM CHLORIDE
     Indication: Hypokalaemia
     Route: 048
     Dates: end: 20240924
  9. SKENAN [Interacting]
     Active Substance: MORPHINE SULFATE
     Indication: Pain
     Dosage: L.P,PROLONGED RELEASE MICROGRANULES IN CAPSULE
     Route: 048
     Dates: end: 20240924
  10. FUROSEMIDE [Interacting]
     Active Substance: FUROSEMIDE
     Indication: Cardiac failure
     Route: 048
     Dates: end: 20240924
  11. SPIRONOLACTONE [Interacting]
     Active Substance: SPIRONOLACTONE
     Indication: Cardiac failure
     Route: 048
     Dates: end: 20240924
  12. DAPAGLIFLOZIN [Interacting]
     Active Substance: DAPAGLIFLOZIN
     Indication: Cardiac failure
     Route: 048
     Dates: end: 20240924
  13. ESOMEPRAZOLE [Concomitant]
     Active Substance: ESOMEPRAZOLE
     Indication: Gastrooesophageal reflux disease
     Route: 048
     Dates: end: 20240924
  14. VOGALENE [Concomitant]
     Active Substance: METOPIMAZINE
     Indication: Nausea
     Dosage: ORAL LYOPHILISATE
     Route: 048
     Dates: end: 20240924
  15. CLOMIPRAMINE HYDROCHLORIDE [Interacting]
     Active Substance: CLOMIPRAMINE HYDROCHLORIDE
     Indication: Pain
     Route: 048
     Dates: end: 20240924
  16. ENTRESTO [Interacting]
     Active Substance: SACUBITRIL\VALSARTAN
     Indication: Cardiac failure
     Dosage: 49 MG/51 MG
     Route: 048
     Dates: end: 20240924
  17. LACTULOSE\PARAFFIN [Concomitant]
     Active Substance: LACTULOSE\PARAFFIN
     Indication: Constipation prophylaxis
     Dosage: ORAL JELLY IN A JAR
     Route: 048
  18. BISOPROLOL [Interacting]
     Active Substance: BISOPROLOL
     Indication: Cardiac failure
     Dosage: BISOPROLOL (FUMARATE)
     Route: 048
     Dates: end: 20240924

REACTIONS (5)
  - Acute respiratory distress syndrome [Recovered/Resolved]
  - Drug interaction [Recovered/Resolved]
  - Altered state of consciousness [Recovered/Resolved]
  - Hyperkalaemia [Recovered/Resolved]
  - Acute kidney injury [Recovered/Resolved]

NARRATIVE: CASE EVENT DATE: 20240924
